FAERS Safety Report 19855284 (Version 3)
Quarter: 2021Q4

REPORT INFORMATION
  Report Type: Spontaneous
  Country: JP (occurrence: JP)
  Receive Date: 20210920
  Receipt Date: 20211014
  Transmission Date: 20220303
  Serious: Yes (Life-Threatening, Hospitalization, Other)
  Sender: FDA-Public Use
  Company Number: JP-BRISTOL-MYERS SQUIBB COMPANY-BMS-2021-093553

PATIENT
  Age: 59 Year
  Sex: Female

DRUGS (2)
  1. NIVOLUMAB [Suspect]
     Active Substance: NIVOLUMAB
     Indication: Head and neck cancer
     Dosage: 3 MILLIGRAM/KILOGRAM
     Route: 041
  2. OSELTAMIVIR [Concomitant]
     Active Substance: OSELTAMIVIR
     Indication: Influenza
     Route: 065

REACTIONS (5)
  - Immune-mediated lung disease [Recovering/Resolving]
  - Immune-mediated enterocolitis [Unknown]
  - Arthralgia [Unknown]
  - Pathergy reaction [Unknown]
  - Hepatic function abnormal [Unknown]
